FAERS Safety Report 10696500 (Version 1)
Quarter: 2015Q1

REPORT INFORMATION
  Report Type: Other
  Country: FR (occurrence: FR)
  Receive Date: 20150107
  Receipt Date: 20150107
  Transmission Date: 20150721
  Serious: Yes (Other)
  Sender: FDA-Public Use
  Company Number: FR-MYLANLABS-2014M1015612

PATIENT

DRUGS (3)
  1. ENDOXAN                            /00021101/ [Suspect]
     Active Substance: CYCLOPHOSPHAMIDE
     Indication: ENDOMETRIAL CANCER
     Dosage: UNK, CYCLE
     Route: 041
     Dates: start: 201404
  2. EPIRUBICINE MYLAN 2 MG/ML, SOLUTION POUR PERFUSION [Suspect]
     Active Substance: EPIRUBICIN
     Indication: ENDOMETRIAL CANCER
     Dosage: UNK, CYCLE
     Route: 041
     Dates: start: 201404
  3. CISPLATINE MYLAN [Suspect]
     Active Substance: CISPLATIN
     Indication: ENDOMETRIAL CANCER
     Dosage: UNK, CYCLE
     Route: 041
     Dates: start: 201404

REACTIONS (1)
  - Angioedema [Recovered/Resolved]

NARRATIVE: CASE EVENT DATE: 201404
